FAERS Safety Report 4408460-7 (Version None)
Quarter: 2004Q3

REPORT INFORMATION
  Report Type: 
  Country: None (occurrence: None)
  Receive Date: 20040722
  Receipt Date: 20040714
  Transmission Date: 20050211
  Serious: Yes (Death)
  Sender: FDA-Public Use
  Company Number: US-JNJFOC-20040704076

PATIENT
  Age: 49 Year
  Sex: Male

DRUGS (1)
  1. DURAGESIC [Suspect]
     Dosage: TRANSDERMAL
     Route: 062

REACTIONS (2)
  - DISEASE PROGRESSION [None]
  - OVERDOSE [None]
